FAERS Safety Report 8837012 (Version 1)
Quarter: 2012Q4

REPORT INFORMATION
  Report Type: Spontaneous
  Country: US (occurrence: None)
  Receive Date: 20121010
  Receipt Date: 20121010
  Transmission Date: 20130627
  Serious: Yes (Hospitalization)
  Sender: FDA-Public Use
  Company Number: UCM201209-000075

PATIENT
  Age: 50 Year
  Sex: Female

DRUGS (5)
  1. HYDROCHLOROTHIAZIDE [Suspect]
  2. LICORICE [Suspect]
     Dosage: Equivalent to 500 mg/day of glycyrrhizic acid
  3. SERTRALINE [Suspect]
  4. QUETIAPINE [Suspect]
  5. CALCIUM\VITAMIN D [Suspect]

REACTIONS (6)
  - Rhabdomyolysis [None]
  - Hypertension [None]
  - Hypokalaemia [None]
  - Hypophosphataemia [None]
  - Hypocalcaemia [None]
  - Hyperparathyroidism [None]
